FAERS Safety Report 15821374 (Version 2)
Quarter: 2019Q1

REPORT INFORMATION
  Report Type: Report from Study
  Country: CA (occurrence: CA)
  Receive Date: 20190114
  Receipt Date: 20190207
  Transmission Date: 20190417
  Serious: Yes (Other)
  Sender: FDA-Public Use
  Company Number: CA-JNJFOC-20180936190

PATIENT
  Age: 25 Year
  Sex: Male
  Weight: 79.9 kg

DRUGS (1)
  1. REMICADE [Suspect]
     Active Substance: INFLIXIMAB
     Indication: CROHN^S DISEASE
     Dosage: STRENGTH = 100 MG
     Route: 042
     Dates: start: 20160223

REACTIONS (3)
  - Electrocution [Unknown]
  - Small intestinal resection [Unknown]
  - Impaired healing [Unknown]

NARRATIVE: CASE EVENT DATE: 201808
